FAERS Safety Report 23434772 (Version 1)
Quarter: 2024Q1

REPORT INFORMATION
  Report Type: Spontaneous
  Country: US (occurrence: US)
  Receive Date: 20240123
  Receipt Date: 20240123
  Transmission Date: 20240410
  Serious: No
  Sender: FDA-Public Use
  Company Number: US-NOVOPROD-1145792

PATIENT
  Age: 29 Year
  Sex: Female

DRUGS (1)
  1. WEGOVY [Suspect]
     Active Substance: SEMAGLUTIDE
     Indication: Weight control
     Dosage: DOSE WEEKLY ON WEDNESDAY
     Route: 058

REACTIONS (2)
  - Increased appetite [Not Recovered/Not Resolved]
  - Weight loss poor [Not Recovered/Not Resolved]

NARRATIVE: CASE EVENT DATE: 20230901
